FAERS Safety Report 16181684 (Version 3)
Quarter: 2019Q2

REPORT INFORMATION
  Report Type: Report from Study
  Country: GB (occurrence: GB)
  Receive Date: 20190410
  Receipt Date: 20190531
  Transmission Date: 20190711
  Serious: Yes (Hospitalization)
  Sender: FDA-Public Use
  Company Number: GB-PFIZER INC-2019146578

PATIENT
  Age: 60 Year
  Sex: Female
  Weight: 51.2 kg

DRUGS (5)
  1. SRA737 [Suspect]
     Active Substance: INVESTIGATIONAL PRODUCT
     Indication: LEIOMYOSARCOMA
     Dosage: 500 MG, SINGLE DOSE ON DAY -7
     Route: 048
     Dates: start: 20190213, end: 20190213
  2. SRA737 [Suspect]
     Active Substance: INVESTIGATIONAL PRODUCT
     Dosage: 500 MG, CYCLIC (ON DAYS 2, 3, 9, 10, 16 AND 17 OF EACH 28-DAY CYCLE)
     Route: 048
     Dates: start: 20190220, end: 20190221
  3. GEMCITABINE HYDROCHLORIDE. [Suspect]
     Active Substance: GEMCITABINE HYDROCHLORIDE
     Indication: LEIOMYOSARCOMA
     Dosage: 250 MG/M2, CYCLIC (ON DAYS 1, 8 AND 15 OF EACH 28-DAY CYCLE)
     Route: 042
     Dates: start: 20190219, end: 20190219
  4. GEMCITABINE HYDROCHLORIDE. [Suspect]
     Active Substance: GEMCITABINE HYDROCHLORIDE
     Dosage: 250 MG/M2, CYCLIC  (ONCE DAILY (QD) ON DAY 8 OF CYCLE 1 OF EACH 28 DAY CYCLE)
     Route: 042
     Dates: start: 20190311
  5. SRA737 [Suspect]
     Active Substance: INVESTIGATIONAL PRODUCT
     Dosage: 500 MG, CYCLIC (QD ON DAY 9 OF CYCLE 1 OF EACH 28 DAY CYCLE)
     Route: 048
     Dates: start: 20190312

REACTIONS (1)
  - Abdominal infection [Recovered/Resolved]

NARRATIVE: CASE EVENT DATE: 20190222
